FAERS Safety Report 23309533 (Version 2)
Quarter: 2023Q4

REPORT INFORMATION
  Report Type: Spontaneous
  Country: JP (occurrence: JP)
  Receive Date: 20231218
  Receipt Date: 20231228
  Transmission Date: 20240109
  Serious: Yes (Hospitalization)
  Sender: FDA-Public Use
  Company Number: JP-JNJFOC-20231245955

PATIENT
  Age: 81 Year
  Sex: Female

DRUGS (6)
  1. UPTRAVI [Suspect]
     Active Substance: SELEXIPAG
     Indication: Pulmonary hypertension
     Route: 048
     Dates: start: 20220405, end: 20220407
  2. UPTRAVI [Suspect]
     Active Substance: SELEXIPAG
     Route: 048
     Dates: start: 20220408, end: 20220414
  3. UPTRAVI [Suspect]
     Active Substance: SELEXIPAG
     Route: 048
     Dates: start: 20220415
  4. TRACLEER [Concomitant]
     Active Substance: BOSENTAN
  5. BERAPROST SODIUM [Concomitant]
     Active Substance: BERAPROST SODIUM
     Indication: Pulmonary hypertension
     Dates: end: 20220415
  6. WARFARIN [Concomitant]
     Active Substance: WARFARIN

REACTIONS (1)
  - Fracture [Not Recovered/Not Resolved]

NARRATIVE: CASE EVENT DATE: 20231201
